FAERS Safety Report 22352867 (Version 1)
Quarter: 2023Q2

REPORT INFORMATION
  Report Type: Report from Study
  Country: CA (occurrence: None)
  Receive Date: 20230523
  Receipt Date: 20230523
  Transmission Date: 20230722
  Serious: Yes (Other)
  Sender: FDA-Public Use
  Company Number: 2023A117074

PATIENT
  Sex: Male

DRUGS (18)
  1. FASENRA [Suspect]
     Active Substance: BENRALIZUMAB
     Indication: Asthma
     Route: 058
     Dates: start: 20181126
  2. SYMBICORT [Concomitant]
     Active Substance: BUDESONIDE\FORMOTEROL FUMARATE DIHYDRATE
  3. VENTOLIN [Concomitant]
     Active Substance: ALBUTEROL SULFATE
  4. ACTONEL [Concomitant]
     Active Substance: RISEDRONATE SODIUM
  5. ALFUZOSIN [Concomitant]
     Active Substance: ALFUZOSIN
  6. CANDESARTAN [Concomitant]
     Active Substance: CANDESARTAN
  7. MYRBETRIQ [Concomitant]
     Active Substance: MIRABEGRON
  8. ZOLOFT [Concomitant]
     Active Substance: SERTRALINE HYDROCHLORIDE
  9. LYRICA [Concomitant]
     Active Substance: PREGABALIN
  10. LIPITOR [Concomitant]
     Active Substance: ATORVASTATIN CALCIUM
  11. UNIPHYL [Concomitant]
     Active Substance: THEOPHYLLINE ANHYDROUS
  12. SINGULAIR [Concomitant]
     Active Substance: MONTELUKAST SODIUM
  13. PLAVIX [Concomitant]
     Active Substance: CLOPIDOGREL BISULFATE
  14. REACTINE [Concomitant]
  15. GLICLAZIDE [Concomitant]
     Active Substance: GLICLAZIDE
  16. JANUMET [Concomitant]
     Active Substance: METFORMIN HYDROCHLORIDE\SITAGLIPTIN PHOSPHATE
  17. PREDNISONE [Concomitant]
     Active Substance: PREDNISONE
  18. OMEPRAZOLE [Concomitant]
     Active Substance: OMEPRAZOLE

REACTIONS (2)
  - Asthma [Recovering/Resolving]
  - Drug ineffective [Recovering/Resolving]
